FAERS Safety Report 9417680 (Version 1)
Quarter: 2013Q3

REPORT INFORMATION
  Report Type: Spontaneous
  Country: US (occurrence: None)
  Receive Date: 20130722
  Receipt Date: 20130722
  Transmission Date: 20140515
  Serious: No
  Sender: FDA-Public Use
  Company Number: None

PATIENT
  Age: 62 Year
  Sex: Female

DRUGS (1)
  1. ENBREL [Suspect]
     Indication: RHEUMATOID ARTHRITIS
     Dosage: 50 MG Q 7 DAYS SUBQ
     Route: 058
     Dates: start: 20130620, end: 20130627

REACTIONS (3)
  - Pyrexia [None]
  - Injection site rash [None]
  - Injection site swelling [None]
